FAERS Safety Report 4593030-0 (Version None)
Quarter: 2005Q1

REPORT INFORMATION
  Report Type: 
  Country: None (occurrence: None)
  Receive Date: 20050228
  Receipt Date: 20050218
  Transmission Date: 20050727
  Serious: Yes (Other)
  Sender: FDA-Public Use
  Company Number: US-ABBOTT-05P-163-0291722-00

PATIENT
  Sex: Female

DRUGS (8)
  1. HUMIRA [Suspect]
     Indication: RHEUMATOID ARTHRITIS
     Route: 058
     Dates: start: 20030423
  2. ULTRIM [Concomitant]
     Indication: PAIN
     Dosage: 4-8 TABLETS DAILY AS NEEDED
     Route: 048
     Dates: start: 20020301
  3. PREDNISONE [Concomitant]
     Indication: RHEUMATOID ARTHRITIS
     Route: 048
     Dates: start: 20000101
  4. PANTOPRAZOLE [Concomitant]
     Indication: GASTROOESOPHAGEAL REFLUX DISEASE
     Dosage: ALTERNATES WITH NEXIUM
     Route: 048
     Dates: start: 20010101
  5. ESOMEPRAZOLE [Concomitant]
     Indication: GASTROOESOPHAGEAL REFLUX DISEASE
     Dosage: ALTERNATES WITH PROTONIX
     Route: 048
     Dates: start: 20010101
  6. ACETAMINOPHEN [Concomitant]
     Indication: PAIN
     Route: 048
  7. EPIDURAL PAIN MEDICATION [Concomitant]
     Indication: RHEUMATOID ARTHRITIS
     Route: 008
     Dates: start: 20050209
  8. EPIDURAL PAIN MEDICATION [Concomitant]
     Indication: PAIN

REACTIONS (2)
  - FALL [None]
  - UPPER LIMB FRACTURE [None]
